FAERS Safety Report 14982748 (Version 1)
Quarter: 2018Q2

REPORT INFORMATION
  Report Type: Spontaneous
  Country: US (occurrence: US)
  Receive Date: 20180607
  Receipt Date: 20180607
  Transmission Date: 20180711
  Serious: Yes (Hospitalization, Other)
  Sender: FDA-Public Use
  Company Number: US-SA-2018SA147990

PATIENT
  Age: 50 Year
  Sex: Female
  Weight: 73.48 kg

DRUGS (1)
  1. AUBAGIO [Suspect]
     Active Substance: TERIFLUNOMIDE
     Indication: MULTIPLE SCLEROSIS
     Dosage: UNK UNK, UNK
     Route: 048
     Dates: start: 2017, end: 20180523

REACTIONS (7)
  - Multiple sclerosis relapse [Unknown]
  - Tremor [Unknown]
  - Multiple sclerosis [Unknown]
  - Blindness [Unknown]
  - Muscular weakness [Unknown]
  - Balance disorder [Unknown]
  - Speech disorder [Unknown]

NARRATIVE: CASE EVENT DATE: 20180504
